FAERS Safety Report 14267632 (Version 1)
Quarter: 2017Q4

REPORT INFORMATION
  Report Type: Spontaneous
  Country: US (occurrence: US)
  Receive Date: 20171211
  Receipt Date: 20171211
  Transmission Date: 20180321
  Serious: No
  Sender: FDA-Public Use
  Company Number: US-ROCHE-1854105

PATIENT
  Sex: Male

DRUGS (2)
  1. VALIUM [Suspect]
     Active Substance: DIAZEPAM
     Indication: PRODUCT USED FOR UNKNOWN INDICATION
     Route: 065
  2. CORGARD [Suspect]
     Active Substance: NADOLOL
     Indication: MIGRAINE
     Route: 065

REACTIONS (5)
  - Bradycardia [None]
  - Anxiety [None]
  - Tremor [None]
  - Ill-defined disorder [Unknown]
  - Nervousness [None]
